FAERS Safety Report 19381616 (Version 7)
Quarter: 2021Q3

REPORT INFORMATION
  Report Type: Spontaneous
  Country: JP (occurrence: JP)
  Receive Date: 20210607
  Receipt Date: 20210901
  Transmission Date: 20211014
  Serious: Yes (Hospitalization)
  Sender: FDA-Public Use
  Company Number: JP-JNJFOC-20210435401

PATIENT
  Age: 53 Year
  Sex: Male

DRUGS (28)
  1. RISPERDAL [Suspect]
     Active Substance: RISPERIDONE
     Route: 048
  2. RISPERDAL [Suspect]
     Active Substance: RISPERIDONE
     Dosage: DOSE UNKNOWN
     Route: 048
  3. RISPERDAL [Suspect]
     Active Substance: RISPERIDONE
     Dosage: IN THE AFTERNOON
     Route: 048
     Dates: start: 20210626
  4. RISPERIDONE. [Suspect]
     Active Substance: RISPERIDONE
     Route: 048
  5. RISPERDAL [Suspect]
     Active Substance: RISPERIDONE
     Indication: PRODUCT USED FOR UNKNOWN INDICATION
     Dosage: DOSE UNKNOWN
     Route: 048
  6. RISPERDAL [Suspect]
     Active Substance: RISPERIDONE
     Dosage: DOSE UNKNOWN
     Route: 048
     Dates: start: 201907
  7. RISPERIDONE. [Suspect]
     Active Substance: RISPERIDONE
     Dosage: DOSE UNKNOWN
     Route: 048
     Dates: start: 2019
  8. RISPERIDONE. [Suspect]
     Active Substance: RISPERIDONE
     Route: 048
  9. RISPERDAL [Suspect]
     Active Substance: RISPERIDONE
     Route: 048
     Dates: start: 201911, end: 2019
  10. RISPERDAL [Suspect]
     Active Substance: RISPERIDONE
     Route: 048
     Dates: start: 2019, end: 2019
  11. CYMBALTA [Concomitant]
     Active Substance: DULOXETINE HYDROCHLORIDE
     Route: 048
     Dates: start: 201911
  12. CYMBALTA [Concomitant]
     Active Substance: DULOXETINE HYDROCHLORIDE
     Dosage: DOSE UNKNOWN
     Route: 048
  13. CYMBALTA [Concomitant]
     Active Substance: DULOXETINE HYDROCHLORIDE
     Dosage: DOSE UNKNOWN
     Route: 048
  14. RISPERDAL [Suspect]
     Active Substance: RISPERIDONE
     Dosage: 6?8 MG PER DAY
     Route: 048
     Dates: start: 2003
  15. RISPERDAL [Suspect]
     Active Substance: RISPERIDONE
     Route: 048
     Dates: start: 2019, end: 2019
  16. RISPERDAL [Suspect]
     Active Substance: RISPERIDONE
     Dosage: UP TO 4 MG DAILY
     Route: 048
     Dates: start: 201912
  17. RISPERDAL [Suspect]
     Active Substance: RISPERIDONE
     Dosage: 4 TIMES PER DAY, P.R.N
     Route: 048
     Dates: start: 202004
  18. CYMBALTA [Concomitant]
     Active Substance: DULOXETINE HYDROCHLORIDE
     Route: 048
  19. LULLAN [Concomitant]
     Active Substance: PEROSPIRONE HYDROCHLORIDE
     Route: 048
  20. RISPERIDONE. [Suspect]
     Active Substance: RISPERIDONE
     Indication: PRODUCT USED FOR UNKNOWN INDICATION
     Route: 048
  21. LORAZEPAM. [Concomitant]
     Active Substance: LORAZEPAM
     Dosage: 3 TIMES PER DAY, P.R.N
     Route: 048
  22. RISPERDAL [Suspect]
     Active Substance: RISPERIDONE
     Route: 048
  23. RISPERDAL [Suspect]
     Active Substance: RISPERIDONE
     Route: 048
     Dates: start: 2019, end: 2019
  24. RISPERDAL [Suspect]
     Active Substance: RISPERIDONE
     Dosage: IN THE MORNING
     Route: 048
  25. RISPERIDONE. [Suspect]
     Active Substance: RISPERIDONE
     Dosage: IN THE MORNING,AT BEDTIME
     Route: 048
  26. LULLAN [Concomitant]
     Active Substance: PEROSPIRONE HYDROCHLORIDE
     Route: 048
     Dates: start: 2019, end: 201912
  27. LULLAN [Concomitant]
     Active Substance: PEROSPIRONE HYDROCHLORIDE
     Route: 048
     Dates: start: 201912
  28. LULLAN [Concomitant]
     Active Substance: PEROSPIRONE HYDROCHLORIDE
     Dosage: P.R.N, UP TO 4 TIMES DAILY
     Route: 048
     Dates: start: 202011

REACTIONS (15)
  - Parkinsonism [Recovered/Resolved]
  - Logorrhoea [Recovered/Resolved]
  - Bradykinesia [Recovering/Resolving]
  - Tardive dyskinesia [Recovering/Resolving]
  - Inappropriate schedule of product administration [Unknown]
  - Salivary hypersecretion [Recovered/Resolved]
  - Irritability [Recovered/Resolved]
  - Orthostatic hypotension [Unknown]
  - Akathisia [Recovered/Resolved]
  - Pleurothotonus [Unknown]
  - Off label use [Unknown]
  - Dyskinesia [Unknown]
  - Dizziness postural [Unknown]
  - Product use in unapproved indication [Unknown]
  - Anxiety [Recovered/Resolved]

NARRATIVE: CASE EVENT DATE: 2003
